FAERS Safety Report 6722831-5 (Version None)
Quarter: 2010Q2

REPORT INFORMATION
  Report Type: 
  Country: None (occurrence: None)
  Receive Date: 20100512
  Receipt Date: 20100512
  Transmission Date: 20101027
  Serious: Yes (Other)
  Sender: FDA-Public Use
  Company Number: None

PATIENT
  Sex: Female
  Weight: 86.1834 kg

DRUGS (2)
  1. YAZ [Suspect]
     Indication: ACNE
     Dosage: 3MG/0.02MG 1 A DAY PO
     Route: 048
  2. YAZ [Suspect]
     Indication: ORAL CONTRACEPTION
     Dosage: 3MG/0.02MG 1 A DAY PO
     Route: 048

REACTIONS (14)
  - ABDOMINAL DISTENSION [None]
  - CONSTIPATION [None]
  - DRUG INTERACTION [None]
  - DRY SKIN [None]
  - DYSPEPSIA [None]
  - FATIGUE [None]
  - FEELING ABNORMAL [None]
  - HEADACHE [None]
  - HYPERCHLORHYDRIA [None]
  - INCREASED APPETITE [None]
  - INSOMNIA [None]
  - NAUSEA [None]
  - POLLAKIURIA [None]
  - THIRST [None]
